FAERS Safety Report 10264851 (Version 1)
Quarter: 2014Q2

REPORT INFORMATION
  Report Type: Spontaneous
  Country: US (occurrence: None)
  Receive Date: 20140625
  Receipt Date: 20140625
  Transmission Date: 20141212
  Serious: Yes (Hospitalization)
  Sender: FDA-Public Use
  Company Number: None

PATIENT
  Age: 72 Year
  Sex: Male

DRUGS (7)
  1. IMBRUVICA 140 MG [Suspect]
     Indication: CHRONIC LYMPHOCYTIC LEUKAEMIA
     Route: 048
     Dates: start: 20140325, end: 201406
  2. FLUOXETINE [Concomitant]
  3. TERAZOSIN [Concomitant]
  4. SULFAMETHOXAZOLE [Concomitant]
  5. MEGESTROL [Concomitant]
  6. WARFARIN [Concomitant]
  7. LEVOTHYROXINE [Concomitant]

REACTIONS (1)
  - Blood count abnormal [None]
